FAERS Safety Report 10900496 (Version 5)
Quarter: 2015Q2

REPORT INFORMATION
  Report Type: Spontaneous
  Country: GB (occurrence: None)
  Receive Date: 20150303
  Receipt Date: 20150414
  Transmission Date: 20150821
  Serious: Yes (Death, Other)
  Sender: FDA-Public Use
  Company Number: 2762929

PATIENT
  Age: 71 Year
  Sex: Female
  Weight: 64.3 kg

DRUGS (8)
  1. ATENOLOL. [Concomitant]
     Active Substance: ATENOLOL
  2. CARBOPLATIN. [Suspect]
     Active Substance: CARBOPLATIN
     Indication: CHEMOTHERAPY
     Dosage: 400 MG MILLIGRAM(S), CYCLICAL?
     Route: 042
     Dates: start: 20150115, end: 20150115
  3. VINORELBINE [Suspect]
     Active Substance: VINORELBINE\VINORELBINE TARTRATE
     Indication: CHEMOTHERAPY
     Dosage: 40 MG MILLIGRAM (S), CYCLICAL
     Route: 042
     Dates: start: 20150115, end: 20150115
  4. ONDANSETRON [Concomitant]
     Active Substance: ONDANSETRON
  5. ABACAVIR [Suspect]
     Active Substance: ABACAVIR
     Indication: CHEMOTHERAPY
  6. GLUCOSE [Concomitant]
     Active Substance: DEXTROSE
  7. SALINE [Concomitant]
     Active Substance: SODIUM CHLORIDE
     Indication: CHEMOTHERAPY
  8. DEXAMETHASONE. [Concomitant]
     Active Substance: DEXAMETHASONE

REACTIONS (12)
  - Cold sweat [None]
  - Cardiopulmonary failure [None]
  - Depressed level of consciousness [None]
  - Flushing [None]
  - Back pain [None]
  - Blood pressure decreased [None]
  - Infusion related reaction [None]
  - Malaise [None]
  - Dyspnoea [None]
  - Condition aggravated [None]
  - Hypersensitivity [None]
  - Pulmonary embolism [None]

NARRATIVE: CASE EVENT DATE: 20150115
